FAERS Safety Report 10517051 (Version 2)
Quarter: 2014Q4

REPORT INFORMATION
  Report Type: Spontaneous
  Country: FR (occurrence: FR)
  Receive Date: 20141014
  Receipt Date: 20141014
  Transmission Date: 20150528
  Serious: Yes (Other)
  Sender: FDA-Public Use
  Company Number: FR-BRACCO-001592

PATIENT
  Age: 60 Year
  Sex: Male

DRUGS (4)
  1. PERINDOPRIL [Suspect]
     Active Substance: PERINDOPRIL
     Route: 048
     Dates: start: 20130617, end: 20130617
  2. KARDEGIC [Suspect]
     Active Substance: ASPIRIN LYSINE
     Route: 048
     Dates: start: 20130616, end: 20130617
  3. ESIDREX [Suspect]
     Active Substance: HYDROCHLOROTHIAZIDE
     Route: 048
     Dates: start: 20130617, end: 20130617
  4. IOPAMIRON [Suspect]
     Active Substance: IOPAMIDOL
     Route: 042
     Dates: start: 20130617, end: 20130617

REACTIONS (1)
  - Angioedema [Recovered/Resolved]

NARRATIVE: CASE EVENT DATE: 20130617
